FAERS Safety Report 14836994 (Version 1)
Quarter: 2018Q2

REPORT INFORMATION
  Report Type: Spontaneous
  Country: ES (occurrence: ES)
  Receive Date: 20180502
  Receipt Date: 20180502
  Transmission Date: 20180711
  Serious: Yes (Hospitalization)
  Sender: FDA-Public Use
  Company Number: ES-TEVA-2018-ES-887560

PATIENT
  Age: 77 Year
  Sex: Female

DRUGS (6)
  1. IBUPROFENO (1769A) [Suspect]
     Active Substance: IBUPROFEN
     Indication: PAIN
     Route: 048
     Dates: start: 201511
  2. IXIA PLUS 40/25 MG [Interacting]
     Active Substance: HYDROCHLOROTHIAZIDE\OLMESARTAN MEDOXOMIL
     Indication: HYPERTENSION
     Route: 048
     Dates: start: 2015, end: 20151111
  3. OMEPRAZOL (2141A) [Concomitant]
     Active Substance: OMEPRAZOLE
     Route: 048
  4. ORFIDAL 1 MG COMPRIMIDOS, 50 COMPRIMIDOS [Concomitant]
     Route: 048
  5. PREGABALINA (3897A) [Concomitant]
     Active Substance: PREGABALIN
     Route: 048
  6. MOXON 0,2 MG [Concomitant]
     Route: 048

REACTIONS (2)
  - Acute kidney injury [Recovered/Resolved]
  - Drug interaction [Unknown]

NARRATIVE: CASE EVENT DATE: 20151111
